FAERS Safety Report 22349781 (Version 1)
Quarter: 2023Q2

REPORT INFORMATION
  Report Type: Spontaneous
  Country: US (occurrence: None)
  Receive Date: 20230519
  Receipt Date: 20230519
  Transmission Date: 20230722
  Serious: No
  Sender: FDA-Public Use
  Company Number: None

PATIENT
  Sex: Female
  Weight: 89.4 kg

DRUGS (1)
  1. LENVIMA [Suspect]
     Active Substance: LENVATINIB
     Indication: Endometrial cancer
     Dosage: FREQUENCY : DAILY;?
     Route: 048
     Dates: start: 20230420

REACTIONS (7)
  - Hypertension [None]
  - Headache [None]
  - Confusional state [None]
  - Memory impairment [None]
  - Fatigue [None]
  - Cough [None]
  - Thyroid function test abnormal [None]
